FAERS Safety Report 9419918 (Version 2)
Quarter: 2013Q3

REPORT INFORMATION
  Report Type: Spontaneous
  Country: US (occurrence: US)
  Receive Date: 20130725
  Receipt Date: 20130927
  Transmission Date: 20140515
  Serious: Yes (Hospitalization, Other)
  Sender: FDA-Public Use
  Company Number: US-009507513-2012SP025652

PATIENT
  Sex: Female
  Weight: 80.95 kg

DRUGS (3)
  1. NUVARING [Suspect]
     Indication: CONTRACEPTION
     Dosage: 0.120 MG/0.015 MG PER DAY, UNK
     Route: 067
     Dates: start: 2006
  2. NUVARING [Suspect]
     Dosage: 0.120 MG/0.015 MG PER DAY, UNK
     Route: 067
     Dates: end: 20100604
  3. ACCUTANE [Concomitant]
     Indication: ACNE CYSTIC

REACTIONS (21)
  - Hypoacusis [Unknown]
  - Pulmonary embolism [Recovered/Resolved]
  - Angina pectoris [Unknown]
  - Headache [Unknown]
  - Papilloma viral infection [Recovered/Resolved]
  - Cryotherapy [Unknown]
  - Intestinal dilatation [Unknown]
  - Pleural effusion [Recovered/Resolved]
  - Rhinitis allergic [Unknown]
  - Pain in extremity [Recovering/Resolving]
  - Anticoagulation drug level below therapeutic [Unknown]
  - Palpitations [Not Recovered/Not Resolved]
  - Insomnia [Not Recovered/Not Resolved]
  - Amenorrhoea [Unknown]
  - Weight increased [Unknown]
  - Headache [Unknown]
  - Maternal exposure before pregnancy [Recovered/Resolved]
  - Fatigue [Unknown]
  - Photosensitivity reaction [Unknown]
  - Macule [Unknown]
  - Face oedema [Unknown]
